FAERS Safety Report 7502733-7 (Version None)
Quarter: 2011Q2

REPORT INFORMATION
  Report Type: 
  Country: None (occurrence: None)
  Receive Date: 20110525
  Receipt Date: 20110517
  Transmission Date: 20111010
  Serious: Yes (Hospitalization)
  Sender: FDA-Public Use
  Company Number: FR-B.I. PHARMACEUTICALS,INC./RIDGEFIELD-2011-FF-00498FF

PATIENT
  Sex: Female
  Weight: 2.22 kg

DRUGS (3)
  1. ABACAVIR SULFATE AND LAMIVUDINE [Suspect]
     Indication: DRUG EXPOSURE DURING PREGNANCY
     Route: 064
     Dates: start: 20100101
  2. RETROVIR [Suspect]
     Indication: ANTIVIRAL PROPHYLAXIS
     Route: 064
     Dates: start: 20110423, end: 20110423
  3. VIRAMUNE [Suspect]
     Indication: DRUG EXPOSURE DURING PREGNANCY
     Route: 064
     Dates: start: 20050601

REACTIONS (4)
  - FOETAL GROWTH RESTRICTION [None]
  - FOETAL HEART RATE DISORDER [None]
  - PULMONARY ARTERIAL HYPERTENSION [None]
  - NEONATAL ANOXIA [None]
